FAERS Safety Report 25601881 (Version 2)
Quarter: 2025Q3

REPORT INFORMATION
  Report Type: Spontaneous
  Country: GB (occurrence: GB)
  Receive Date: 20250724
  Receipt Date: 20250804
  Transmission Date: 20251021
  Serious: Yes (Death)
  Sender: CADILA
  Company Number: GB-CPL-005540

PATIENT
  Age: 58 Year
  Sex: Male

DRUGS (3)
  1. VENLAFAXINE [Suspect]
     Active Substance: VENLAFAXINE HYDROCHLORIDE
  2. MIRTAZAPINE [Suspect]
     Active Substance: MIRTAZAPINE
  3. DIMETHYLTRYPTAMINE [Suspect]
     Active Substance: DIMETHYLTRYPTAMINE

REACTIONS (5)
  - Serotonin syndrome [Fatal]
  - Drug abuse [Fatal]
  - Hypertensive heart disease [Fatal]
  - Toxicity to various agents [Fatal]
  - Hypertensive crisis [Fatal]
